FAERS Safety Report 18330601 (Version 1)
Quarter: 2020Q3

REPORT INFORMATION
  Report Type: Spontaneous
  Country: DE (occurrence: DE)
  Receive Date: 20200930
  Receipt Date: 20200930
  Transmission Date: 20201103
  Serious: Yes (Hospitalization, Other)
  Sender: FDA-Public Use
  Company Number: DE-MYLANLABS-2020M1081767

PATIENT
  Age: 1 Day
  Sex: Male
  Weight: 2.56 kg

DRUGS (2)
  1. METOPROLOL. [Suspect]
     Active Substance: METOPROLOL
     Dosage: 200 [MG/D ]/ DOSAGE INCREASED TO 200MG/D FROM WEEK 36+1 2 SEPARATED DOSES
     Route: 064
     Dates: start: 20200222, end: 20200708
  2. METOPROLOL. [Suspect]
     Active Substance: METOPROLOL
     Indication: HYPERTENSION
     Dosage: 75 MILLIGRAM, QD (INITIAL75MG/D)
     Route: 064

REACTIONS (4)
  - Premature baby [Recovered/Resolved]
  - Hypoglycaemia neonatal [Recovered/Resolved]
  - Temperature regulation disorder [Recovered/Resolved]
  - Foetal exposure during pregnancy [Recovered/Resolved]

NARRATIVE: CASE EVENT DATE: 20200708
